FAERS Safety Report 16349444 (Version 2)
Quarter: 2019Q2

REPORT INFORMATION
  Report Type: Report from Study
  Country: US (occurrence: US)
  Receive Date: 20190523
  Receipt Date: 20190621
  Transmission Date: 20190711
  Serious: Yes (Other)
  Sender: FDA-Public Use
  Company Number: US-ACTELION-A-NJ2019-186995

PATIENT
  Age: 69 Year
  Sex: Female
  Weight: 77.1 kg

DRUGS (8)
  1. UPTRAVI [Suspect]
     Active Substance: SELEXIPAG
     Dosage: 1200 MCG, BID
     Route: 048
  2. WARFARIN [Concomitant]
     Active Substance: WARFARIN
  3. OPSUMIT [Suspect]
     Active Substance: MACITENTAN
     Indication: PULMONARY ARTERIAL HYPERTENSION
     Dosage: 10 MG, QD
     Route: 048
  4. UPTRAVI [Suspect]
     Active Substance: SELEXIPAG
     Dosage: 1000 MCG, BID
     Route: 048
  5. UPTRAVI [Suspect]
     Active Substance: SELEXIPAG
     Dosage: 800 MCG
     Route: 048
  6. UPTRAVI [Suspect]
     Active Substance: SELEXIPAG
     Indication: PULMONARY ARTERIAL HYPERTENSION
     Dosage: 600 MCG, BID
     Route: 048
  7. UPTRAVI [Suspect]
     Active Substance: SELEXIPAG
     Dosage: 200 MCG, BID
     Route: 048
     Dates: start: 20190216
  8. TADALAFIL. [Concomitant]
     Active Substance: TADALAFIL

REACTIONS (23)
  - Chronic kidney disease [Not Recovered/Not Resolved]
  - Dyspnoea [Unknown]
  - Headache [Recovered/Resolved]
  - Feeling abnormal [Unknown]
  - Product dose omission [Unknown]
  - Sputum discoloured [Recovering/Resolving]
  - Fatigue [Unknown]
  - Musculoskeletal pain [Unknown]
  - Asthenia [Unknown]
  - Pain in extremity [Unknown]
  - Lethargy [Unknown]
  - Decreased appetite [Unknown]
  - Oxygen saturation decreased [Unknown]
  - Viral infection [Unknown]
  - Nausea [Unknown]
  - Nasopharyngitis [Unknown]
  - Myalgia [Unknown]
  - Condition aggravated [Unknown]
  - Back pain [Unknown]
  - Neck pain [Recovered/Resolved]
  - Cough [Unknown]
  - Influenza like illness [Unknown]
  - Malaise [Unknown]

NARRATIVE: CASE EVENT DATE: 20190315
